FAERS Safety Report 24274453 (Version 1)
Quarter: 2024Q3

REPORT INFORMATION
  Report Type: Spontaneous
  Country: CH (occurrence: CH)
  Receive Date: 20240902
  Receipt Date: 20240902
  Transmission Date: 20241017
  Serious: Yes (Other)
  Sender: PFIZER
  Company Number: CH-PFIZER INC-202400247344

PATIENT
  Sex: Female
  Weight: 61 kg

DRUGS (4)
  1. IRINOTECAN HYDROCHLORIDE [Suspect]
     Active Substance: IRINOTECAN HYDROCHLORIDE
     Dosage: UNK (FOLFOXIRI)
     Dates: start: 20201213, end: 20201214
  2. FLUOROURACIL [Suspect]
     Active Substance: FLUOROURACIL
     Dosage: UNK (FOLFOXIRI)
     Dates: start: 20201213, end: 20201214
  3. LEUCOVORIN [Suspect]
     Active Substance: LEUCOVORIN\LEUCOVORIN CALCIUM
     Dosage: UNK (FOLFOXIRI)
     Dates: start: 20201213, end: 20201214
  4. OXALIPLATIN [Suspect]
     Active Substance: OXALIPLATIN
     Dosage: UNK (FOLFOXIRI)
     Dates: start: 20201213, end: 20201214

REACTIONS (1)
  - Hypovolaemic shock [Unknown]
